FAERS Safety Report 17979341 (Version 2)
Quarter: 2021Q1

REPORT INFORMATION
  Report Type: Spontaneous
  Country: JP (occurrence: JP)
  Receive Date: 20200703
  Receipt Date: 20210205
  Transmission Date: 20210419
  Serious: Yes (Death, Other)
  Sender: FDA-Public Use
  Company Number: JP-009507513-2006JPN002585J

PATIENT
  Sex: Male

DRUGS (1)
  1. KEYTRUDA [Suspect]
     Active Substance: PEMBROLIZUMAB
     Indication: HEAD AND NECK CANCER
     Dosage: 200 MILLIGRAM, Q3W
     Route: 041

REACTIONS (2)
  - Malignant neoplasm progression [Fatal]
  - Drug ineffective [Unknown]
